FAERS Safety Report 24010540 (Version 2)
Quarter: 2024Q2

REPORT INFORMATION
  Report Type: Spontaneous
  Country: US (occurrence: US)
  Receive Date: 20240625
  Receipt Date: 20240625
  Transmission Date: 20240716
  Serious: No
  Sender: FDA-Public Use
  Company Number: ROCHE-10000006388

PATIENT

DRUGS (3)
  1. XOLAIR [Suspect]
     Active Substance: OMALIZUMAB
     Indication: Product used for unknown indication
     Route: 065
  2. REMIBRUTINIB [Concomitant]
     Active Substance: REMIBRUTINIB
  3. duplimab [Concomitant]

REACTIONS (1)
  - Anaphylactic reaction [Unknown]
